FAERS Safety Report 5155407-4 (Version None)
Quarter: 2006Q4

REPORT INFORMATION
  Report Type: 
  Country: None (occurrence: None)
  Receive Date: 20061121
  Receipt Date: 20061114
  Transmission Date: 20070319
  Serious: Yes (Life-Threatening, Hospitalization)
  Sender: FDA-Public Use
  Company Number: ES-SANOFI-SYNTHELABO-A01200609678

PATIENT
  Age: 66 Year
  Sex: Female
  Weight: 72 kg

DRUGS (7)
  1. SOLU MODERIN [Suspect]
     Route: 042
     Dates: start: 20060919, end: 20060919
  2. LEUCOVORIN CALCIUM [Suspect]
     Route: 042
     Dates: start: 20060919, end: 20060919
  3. YATROX [Suspect]
     Route: 042
     Dates: start: 20060919, end: 20060919
  4. SEROXAT [Concomitant]
     Route: 065
  5. FLUOROURACIL [Concomitant]
     Indication: COLON CANCER
     Route: 042
     Dates: start: 20060919, end: 20060919
  6. ELOXATIN [Suspect]
     Indication: COLON CANCER
     Route: 042
     Dates: start: 20060919, end: 20060919
  7. ELOXATIN [Suspect]

REACTIONS (1)
  - RESPIRATORY ARREST [None]
